FAERS Safety Report 13417067 (Version 1)
Quarter: 2017Q2

REPORT INFORMATION
  Report Type: Report from Study
  Country: US (occurrence: US)
  Receive Date: 20170406
  Receipt Date: 20170406
  Transmission Date: 20170830
  Serious: Yes (Other)
  Sender: FDA-Public Use
  Company Number: US-MYLANLABS-2017M1020862

PATIENT

DRUGS (3)
  1. ETOPOSIDE. [Suspect]
     Active Substance: ETOPOSIDE
     Indication: NON-HODGKIN^S LYMPHOMA
     Dosage: 1800MG/M2 OVER 27H ON DAY -10
     Route: 042
  2. THIOTEPA. [Suspect]
     Active Substance: THIOTEPA
     Indication: NON-HODGKIN^S LYMPHOMA
     Dosage: 300MG/M2; ON DAYS -8 TO -6
     Route: 042
  3. CYCLOPHOSPHAMIDE. [Suspect]
     Active Substance: CYCLOPHOSPHAMIDE
     Indication: NON-HODGKIN^S LYMPHOMA
     Dosage: 50MG/KG; ON DAYS -5 TO -2
     Route: 042

REACTIONS (1)
  - Squamous cell carcinoma of the tongue [Unknown]
